FAERS Safety Report 5371759-4 (Version None)
Quarter: 2007Q2

REPORT INFORMATION
  Report Type: 
  Country: None (occurrence: None)
  Receive Date: 20070627
  Receipt Date: 20070618
  Transmission Date: 20071010
  Serious: Yes (Other)
  Sender: FDA-Public Use
  Company Number: US-AMGEN-US229799

PATIENT
  Sex: Female

DRUGS (5)
  1. ARANESP [Suspect]
     Indication: RENAL FAILURE CHRONIC
     Route: 065
     Dates: start: 20050407, end: 20070411
  2. PROGRAF [Concomitant]
  3. PREDNISONE TAB [Concomitant]
  4. CELLCEPT [Concomitant]
  5. NIFEDIPINE [Concomitant]

REACTIONS (1)
  - APLASIA PURE RED CELL [None]
